FAERS Safety Report 6074158-5 (Version None)
Quarter: 2009Q1

REPORT INFORMATION
  Report Type: 
  Country: None (occurrence: None)
  Receive Date: 20090211
  Receipt Date: 20090128
  Transmission Date: 20090719
  Serious: Yes (Hospitalization)
  Sender: FDA-Public Use
  Company Number: DE-ROCHE-611981

PATIENT
  Sex: Female
  Weight: 88 kg

DRUGS (6)
  1. PEG-INTERFERON ALFA 2A (RO 25-8310) [Suspect]
     Route: 058
     Dates: start: 20080515, end: 20080619
  2. RIBAVIRIN [Concomitant]
     Route: 048
     Dates: start: 20080515, end: 20080620
  3. METFORMIN HCL [Concomitant]
     Route: 048
  4. LEVOTHYROXINE SODIUM [Concomitant]
     Indication: HYPOTHYROIDISM
     Route: 048
  5. ALLOPURINOL [Concomitant]
     Route: 048
  6. SPASMEX [Concomitant]
     Indication: CEREBRAL ATAXIA
     Route: 048

REACTIONS (1)
  - ASCITES [None]
